FAERS Safety Report 9154479 (Version 2)
Quarter: 2013Q1

REPORT INFORMATION
  Report Type: Spontaneous
  Country: US (occurrence: None)
  Receive Date: 20130207
  Receipt Date: 20130329
  Transmission Date: 20140127
  Serious: Yes (Other)
  Sender: FDA-Public Use
  Company Number: ACO_33962_2013

PATIENT
  Age: 54 Year
  Sex: Female

DRUGS (3)
  1. AMPYRA [Suspect]
     Indication: MULTIPLE SCLEROSIS
     Dates: start: 20100720
  2. TYSABRI (NATALIZUMAB) [Concomitant]
  3. AMBIEN (ZOLPIDEM TARTRATE) [Concomitant]

REACTIONS (2)
  - Blood iron decreased [None]
  - Red blood cell count decreased [None]
